FAERS Safety Report 9648418 (Version 1)
Quarter: 2013Q4

REPORT INFORMATION
  Report Type: Spontaneous
  Country: FR (occurrence: FR)
  Receive Date: 20131028
  Receipt Date: 20131028
  Transmission Date: 20140711
  Serious: Yes (Hospitalization)
  Sender: FDA-Public Use
  Company Number: FR-ASTRAZENECA-2013SE78081

PATIENT
  Age: 28882 Day
  Sex: Female

DRUGS (4)
  1. ESOMEPRAZOLE [Suspect]
     Route: 048
     Dates: start: 20130906, end: 20130913
  2. CRESTOR [Suspect]
     Route: 048
  3. PROFENID [Suspect]
     Indication: PAIN
     Route: 048
     Dates: start: 20130906, end: 20130913
  4. PROPRANOLOL [Concomitant]
     Indication: TREMOR

REACTIONS (5)
  - Blood osmolarity decreased [Recovered/Resolved]
  - Inappropriate antidiuretic hormone secretion [Unknown]
  - Hyponatraemia [Recovered/Resolved]
  - Somnolence [Recovered/Resolved]
  - Confusional state [Recovered/Resolved]
